FAERS Safety Report 13441050 (Version 1)
Quarter: 2017Q2

REPORT INFORMATION
  Report Type: Spontaneous
  Country: IR (occurrence: IR)
  Receive Date: 20170413
  Receipt Date: 20170413
  Transmission Date: 20170830
  Serious: Yes (Hospitalization, Other)
  Sender: FDA-Public Use
  Company Number: IR-IMPAX LABORATORIES, INC-2017-IPXL-00930

PATIENT
  Age: 32 Year
  Sex: Male

DRUGS (7)
  1. ADRENACLICK [Suspect]
     Active Substance: EPINEPHRINE
     Indication: VASOPLEGIA SYNDROME
     Dosage: 0.02 ?G/KG/MIN DRIP
     Route: 065
  2. ADRENACLICK [Suspect]
     Active Substance: EPINEPHRINE
     Dosage: INCREASED TO 0.1 ?G/KG/MIN
     Route: 065
  3. NOREPINEPHRINE. [Suspect]
     Active Substance: NOREPINEPHRINE
     Dosage: INCREASED TO 0.1 ?G/KG/MIN
     Route: 065
  4. NOREPINEPHRINE. [Suspect]
     Active Substance: NOREPINEPHRINE
     Dosage: 0.02 ?G/KG/MIN; DRIP
     Route: 065
  5. ADRENACLICK [Suspect]
     Active Substance: EPINEPHRINE
     Dosage: 0.02 ?G/KG/MIN DRIP
     Route: 065
  6. VASOPRESSIN. [Concomitant]
     Active Substance: VASOPRESSIN
     Indication: VASOPLEGIA SYNDROME
     Dosage: 0.02 IU/MIN; DRIP
     Route: 065
  7. NOREPINEPHRINE. [Suspect]
     Active Substance: NOREPINEPHRINE
     Indication: VASOPLEGIA SYNDROME
     Dosage: 0.02 ?G/KG/MIN; DRIP
     Route: 065

REACTIONS (2)
  - Drug ineffective [Unknown]
  - Staphylococcal sepsis [Unknown]
